FAERS Safety Report 19234101 (Version 1)
Quarter: 2021Q2

REPORT INFORMATION
  Report Type: Spontaneous
  Country: US (occurrence: US)
  Receive Date: 20210508
  Receipt Date: 20210508
  Transmission Date: 20210717
  Serious: Yes (Other)
  Sender: FDA-Public Use
  Company Number: US-TEVA-2021-US-1908883

PATIENT
  Sex: Male

DRUGS (2)
  1. OMACETAXINE [Suspect]
     Active Substance: OMACETAXINE
     Route: 065
  2. PONATINIB [Suspect]
     Active Substance: PONATINIB
     Dates: start: 201810, end: 202002

REACTIONS (1)
  - Pancreatitis [Unknown]
